FAERS Safety Report 16271465 (Version 1)
Quarter: 2019Q2

REPORT INFORMATION
  Report Type: Spontaneous
  Country: GR (occurrence: GR)
  Receive Date: 20190503
  Receipt Date: 20190503
  Transmission Date: 20190711
  Serious: Yes (Other)
  Sender: FDA-Public Use
  Company Number: GR-ELI_LILLY_AND_COMPANY-GR201904013112

PATIENT
  Age: 7 Month
  Sex: Female
  Weight: 7 kg

DRUGS (8)
  1. ENTACT [Suspect]
     Active Substance: ESCITALOPRAM OXALATE
     Indication: OBSESSIVE-COMPULSIVE DISORDER
     Dosage: 5 MG, DAILY
     Route: 064
  2. FUGENTIN [AMOXICILLIN TRIHYDRATE;CLAVULANATE [Concomitant]
     Indication: PHARYNGITIS
     Dosage: UNK, UNKNOWN
     Route: 065
     Dates: start: 2012, end: 2012
  3. LADOSE 20MG [Suspect]
     Active Substance: FLUOXETINE HYDROCHLORIDE
     Indication: OBSESSIVE-COMPULSIVE DISORDER
     Dosage: 20 MG, DAILY
     Route: 064
  4. LADOSE 20MG [Suspect]
     Active Substance: FLUOXETINE HYDROCHLORIDE
     Indication: OBSESSIVE-COMPULSIVE DISORDER
     Dosage: 20 MG, DAILY
     Route: 064
  5. ENTACT [Suspect]
     Active Substance: ESCITALOPRAM OXALATE
     Indication: OBSESSIVE-COMPULSIVE DISORDER
     Dosage: 5 MG, DAILY
     Route: 064
  6. FUGENTIN [AMOXICILLIN TRIHYDRATE;CLAVULANATE [Concomitant]
     Indication: PHARYNGITIS
     Dosage: UNK, UNKNOWN
     Route: 065
     Dates: start: 2012, end: 2012
  7. UTROGESTAN [Concomitant]
     Active Substance: PROGESTERONE
     Indication: VAGINAL HAEMORRHAGE
     Dosage: UNK, UNKNOWN
     Route: 065
     Dates: start: 2012, end: 2012
  8. UTROGESTAN [Concomitant]
     Active Substance: PROGESTERONE
     Indication: VAGINAL HAEMORRHAGE
     Dosage: UNK, UNKNOWN
     Route: 065
     Dates: start: 2012, end: 2012

REACTIONS (2)
  - Acute lymphocytic leukaemia [Unknown]
  - Foetal exposure during pregnancy [Recovered/Resolved]
